FAERS Safety Report 9640930 (Version 1)
Quarter: 2013Q4

REPORT INFORMATION
  Report Type: Spontaneous
  Country: BR (occurrence: BR)
  Receive Date: 20131023
  Receipt Date: 20131023
  Transmission Date: 20140711
  Serious: Yes (Other)
  Sender: FDA-Public Use
  Company Number: BR-PFIZER INC-2013301389

PATIENT
  Age: 70 Year
  Sex: Female

DRUGS (1)
  1. CELEBRA [Suspect]
     Indication: OSTEOARTHRITIS
     Dosage: 1 TABLET OF STRENGTH 200 MG, 2X/DAY
     Route: 048
     Dates: start: 2006

REACTIONS (2)
  - Spinal disorder [Unknown]
  - Nervousness [Unknown]
